FAERS Safety Report 10548392 (Version 1)
Quarter: 2014Q4

REPORT INFORMATION
  Report Type: Spontaneous
  Country: CA (occurrence: CA)
  Receive Date: 20141028
  Receipt Date: 20141028
  Transmission Date: 20150529
  Serious: Yes (Other)
  Sender: FDA-Public Use
  Company Number: CA-PFIZER INC-2014290836

PATIENT
  Sex: Female

DRUGS (1)
  1. RELPAX [Suspect]
     Active Substance: ELETRIPTAN HYDROBROMIDE
     Dosage: UNKNOWN SPECIFIC DOSE (HIGH DOSE)
     Dates: start: 20140818

REACTIONS (4)
  - Intentional product use issue [Recovered/Resolved]
  - Loss of consciousness [Recovered/Resolved]
  - Mental impairment [Recovered/Resolved]
  - Seizure [Recovered/Resolved]

NARRATIVE: CASE EVENT DATE: 2014
